FAERS Safety Report 7415679-X (Version None)
Quarter: 2011Q2

REPORT INFORMATION
  Report Type: 
  Country: None (occurrence: None)
  Receive Date: 20110414
  Receipt Date: 20110411
  Transmission Date: 20111010
  Serious: Yes (Other)
  Sender: FDA-Public Use
  Company Number: US-MERCK-1104USA01362

PATIENT
  Sex: Male

DRUGS (1)
  1. SINGULAIR [Suspect]
     Indication: ASTHMA
     Route: 048

REACTIONS (5)
  - PHYSICAL ASSAULT [None]
  - ABNORMAL BEHAVIOUR [None]
  - ANGER [None]
  - AGGRESSION [None]
  - AGITATION [None]
